FAERS Safety Report 19404925 (Version 2)
Quarter: 2021Q2

REPORT INFORMATION
  Report Type: Spontaneous
  Country: NL (occurrence: NL)
  Receive Date: 20210611
  Receipt Date: 20210612
  Transmission Date: 20210717
  Serious: Yes (Disabling)
  Sender: FDA-Public Use
  Company Number: NL-TEVA-2021-NL-1920470

PATIENT
  Sex: Female
  Weight: 62 kg

DRUGS (2)
  1. TEMAZEPAM TABLET 20MG / BRAND NAME NOT SPECIFIED [Concomitant]
     Dosage: THERAPY START DATE ASKU, THERAPY END DATE ASKU, 20 MG
  2. METOCLOPRAMIDE TABLET 10MG / BRAND NAME NOT SPECIFIED [Suspect]
     Active Substance: METOCLOPRAMIDE
     Indication: NAUSEA
     Dosage: 5 MILLIGRAM DAILY; HALF A DAY.THERAPY END DATE ASKU
     Dates: start: 202009

REACTIONS (2)
  - Head discomfort [Not Recovered/Not Resolved]
  - Reading disorder [Not Recovered/Not Resolved]
